FAERS Safety Report 20043340 (Version 1)
Quarter: 2021Q4

REPORT INFORMATION
  Report Type: Spontaneous
  Country: US (occurrence: US)
  Receive Date: 20211108
  Receipt Date: 20211108
  Transmission Date: 20220303
  Serious: No
  Sender: FDA-Public Use
  Company Number: US-PERRIGO-21US010889

PATIENT
  Sex: Female

DRUGS (3)
  1. MESALAMINE [Suspect]
     Active Substance: MESALAMINE
     Indication: Product used for unknown indication
     Dosage: UNKNOWN, UNKNOWN
     Route: 054
     Dates: start: 2021
  2. MESALAMINE [Suspect]
     Active Substance: MESALAMINE
     Dosage: UNKNOWN, UNKNOWN
     Route: 054
     Dates: start: 2021
  3. MESALAMINE [Suspect]
     Active Substance: MESALAMINE
     Dosage: UNKNOWN, UNKNOWN
     Route: 054
     Dates: start: 2021

REACTIONS (1)
  - Abdominal pain upper [Unknown]

NARRATIVE: CASE EVENT DATE: 20210101
